FAERS Safety Report 6356837-5 (Version None)
Quarter: 2009Q3

REPORT INFORMATION
  Report Type: 
  Country: None (occurrence: None)
  Receive Date: 20090915
  Receipt Date: 20090909
  Transmission Date: 20100115
  Serious: Yes (Hospitalization, Other)
  Sender: FDA-Public Use
  Company Number: GR-ROXANE LABORATORIES, INC.-2009-RO-00919RO

PATIENT
  Age: 21 Year
  Sex: Male

DRUGS (7)
  1. AZATHIOPRINE [Suspect]
     Indication: COLITIS ULCERATIVE
  2. SALOFALK [Suspect]
     Indication: COLITIS ULCERATIVE
     Dosage: 3000 MG
     Route: 042
  3. SALOFALK [Suspect]
  4. SALOFALK [Suspect]
  5. SALOFALK [Suspect]
     Dosage: 1.6 G
  6. PREDNIZOLONE [Suspect]
     Indication: COLITIS ULCERATIVE
     Route: 042
  7. INFLIXIMAB [Concomitant]
     Indication: COLITIS ULCERATIVE

REACTIONS (2)
  - LIVER FUNCTION TEST ABNORMAL [None]
  - MYOCARDITIS [None]
